FAERS Safety Report 14158554 (Version 1)
Quarter: 2017Q4

REPORT INFORMATION
  Report Type: Spontaneous
  Country: TR (occurrence: TR)
  Receive Date: 20171103
  Receipt Date: 20171103
  Transmission Date: 20180321
  Serious: Yes (Hospitalization, Other)
  Sender: FDA-Public Use
  Company Number: TR-BAYER-2017-212445

PATIENT
  Age: 33 Year
  Sex: Female

DRUGS (2)
  1. CIPROFLOXACIN. [Suspect]
     Active Substance: CIPROFLOXACIN
     Indication: URINARY TRACT INFECTION
     Dosage: UNK
  2. LEVONORGESTREL. [Concomitant]
     Active Substance: LEVONORGESTREL

REACTIONS (4)
  - Blepharophimosis [None]
  - Xerophthalmia [None]
  - Genital labial adhesions [None]
  - Stevens-Johnson syndrome [Recovered/Resolved with Sequelae]
